FAERS Safety Report 9160451 (Version 1)
Quarter: 2013Q1

REPORT INFORMATION
  Report Type: Spontaneous
  Country: BR (occurrence: BR)
  Receive Date: 20130313
  Receipt Date: 20130313
  Transmission Date: 20140127
  Serious: Yes (Hospitalization, Other)
  Sender: FDA-Public Use
  Company Number: BR-ASTRAZENECA-2013SE15726

PATIENT
  Age: 60 Year
  Sex: Male
  Weight: 114 kg

DRUGS (5)
  1. ATACAND [Suspect]
     Indication: BLOOD PRESSURE ABNORMAL
     Route: 048
     Dates: start: 2009
  2. GLIBENCLAMIDE [Concomitant]
     Indication: DIABETES MELLITUS
     Route: 048
  3. GLIFAGE XR [Concomitant]
     Indication: DIABETES MELLITUS
     Route: 048
  4. SIMVASTATIN [Concomitant]
     Route: 048
  5. ANCORON [Concomitant]
     Indication: HEART RATE DECREASED
     Route: 048
     Dates: start: 2012

REACTIONS (3)
  - Heart rate decreased [Recovered/Resolved]
  - Blood pressure increased [Not Recovered/Not Resolved]
  - Drug ineffective [Not Recovered/Not Resolved]
